FAERS Safety Report 8316449-0 (Version None)
Quarter: 2012Q2

REPORT INFORMATION
  Report Type: 
  Country: None (occurrence: None)
  Receive Date: 20120425
  Receipt Date: 20120425
  Transmission Date: 20120825
  Serious: Yes (Other)
  Sender: FDA-Public Use
  Company Number: None

PATIENT
  Sex: Female
  Weight: 81.6475 kg

DRUGS (1)
  1. ALENDRONATE SODIUM [Suspect]
     Dosage: 70 MG 1X/WEEK ORAL
     Route: 048

REACTIONS (4)
  - BONE PAIN [None]
  - RHINORRHOEA [None]
  - PAIN IN EXTREMITY [None]
  - ARTHRALGIA [None]
